FAERS Safety Report 4480865-8 (Version None)
Quarter: 2004Q4

REPORT INFORMATION
  Report Type: 
  Country: None (occurrence: None)
  Receive Date: 20040923
  Receipt Date: 20040722
  Transmission Date: 20050328
  Serious: No
  Sender: FDA-Public Use
  Company Number: USA030741124

PATIENT
  Age: 82 Year
  Sex: Female

DRUGS (3)
  1. FORTEO [Suspect]
     Indication: OSTEOPOROSIS
     Dosage: 20 UG DAY
     Dates: start: 20030627
  2. ACTONEL [Concomitant]
  3. ENBREL [Concomitant]

REACTIONS (4)
  - CONTUSION [None]
  - INJECTION SITE BURNING [None]
  - INJECTION SITE DERMATITIS [None]
  - INJECTION SITE HAEMORRHAGE [None]
